FAERS Safety Report 12510947 (Version 2)
Quarter: 2016Q3

REPORT INFORMATION
  Report Type: Spontaneous
  Country: JP (occurrence: JP)
  Receive Date: 20160629
  Receipt Date: 20160715
  Transmission Date: 20161109
  Serious: Yes (Hospitalization)
  Sender: FDA-Public Use
  Company Number: JP-SA-2016SA119302

PATIENT
  Age: 79 Year
  Sex: Female

DRUGS (1)
  1. PLAVIX [Suspect]
     Active Substance: CLOPIDOGREL BISULFATE
     Indication: MYELOPROLIFERATIVE NEOPLASM
     Route: 048

REACTIONS (19)
  - Intra-abdominal haemorrhage [Recovered/Resolved]
  - Haemoglobin decreased [Recovered/Resolved]
  - Ascites [Recovered/Resolved]
  - Hypotension [Recovered/Resolved]
  - Abdominal wall haematoma [Recovered/Resolved]
  - Nausea [Recovered/Resolved]
  - Haemorrhage [Recovered/Resolved]
  - Red blood cell count decreased [Recovered/Resolved]
  - Abdominal pain lower [Recovered/Resolved]
  - Abdominal tenderness [Recovered/Resolved]
  - Lower urinary tract symptoms [Recovered/Resolved]
  - Dysarthria [Recovered/Resolved]
  - Anaemia [Recovered/Resolved]
  - Vomiting [Recovered/Resolved]
  - Body temperature decreased [Recovered/Resolved]
  - Abdominal distension [Recovered/Resolved]
  - Urinary retention [Recovered/Resolved]
  - Haematocrit decreased [Recovered/Resolved]
  - Computerised tomogram abnormal [Recovered/Resolved]

NARRATIVE: CASE EVENT DATE: 201305
